FAERS Safety Report 16081704 (Version 4)
Quarter: 2019Q3

REPORT INFORMATION
  Report Type: Report from Study
  Country: GB (occurrence: GB)
  Receive Date: 20190316
  Receipt Date: 20190902
  Transmission Date: 20191004
  Serious: Yes (Other)
  Sender: FDA-Public Use
  Company Number: PHHY2019GB058966

PATIENT
  Age: 17 Year
  Sex: Female

DRUGS (2)
  1. HYRIMOZ [Suspect]
     Active Substance: ADALIMUMAB-ADAZ
     Dosage: 160 MG, Q2W (PRE-FILLED PEN)
     Route: 058
     Dates: start: 20190311, end: 201905
  2. HYRIMOZ [Suspect]
     Active Substance: ADALIMUMAB-ADAZ
     Indication: CROHN^S DISEASE
     Dosage: 160 MG, Q2W (PRE-FILLED PEN)
     Route: 058
     Dates: start: 20190311, end: 201905

REACTIONS (5)
  - Injection site pain [Recovered/Resolved]
  - Anxiety [Unknown]
  - Fear of injection [Unknown]
  - Device use issue [Unknown]
  - Injection site pain [Not Recovered/Not Resolved]

NARRATIVE: CASE EVENT DATE: 20190311
